FAERS Safety Report 5694611-3 (Version None)
Quarter: 2008Q2

REPORT INFORMATION
  Report Type: 
  Country: None (occurrence: None)
  Receive Date: 20080404
  Receipt Date: 20080401
  Transmission Date: 20081010
  Serious: Yes (Life-Threatening, Hospitalization)
  Sender: FDA-Public Use
  Company Number: HQWYE218825JUL07

PATIENT
  Sex: Male

DRUGS (10)
  1. SIROLIMUS [Suspect]
     Indication: PROPHYLAXIS AGAINST TRANSPLANT REJECTION
     Route: 048
     Dates: start: 20070606, end: 20070713
  2. PREDNISONE [Suspect]
     Indication: PROPHYLAXIS AGAINST TRANSPLANT REJECTION
     Dates: start: 20070301
  3. NORVASC [Concomitant]
     Dosage: UNSPECIFIED
     Dates: start: 20070301
  4. NEXIUM [Concomitant]
     Dosage: UNKNOWN
     Dates: start: 20070411
  5. URSO 250 [Concomitant]
     Dosage: UNSPECIFIED
     Dates: start: 20070301
  6. LANTUS [Concomitant]
     Dosage: UNSPECIFIED
     Dates: start: 20070301
  7. SEPTRA [Concomitant]
     Dosage: UNSPECIFIED
     Dates: start: 20070301
  8. VALCYTE [Concomitant]
     Dosage: UNSPECIFIED
     Dates: start: 20070301
  9. MYCOPHENOLATE MOFETIL [Concomitant]
     Indication: PROPHYLAXIS AGAINST TRANSPLANT REJECTION
  10. LOPRESSOR [Concomitant]
     Dosage: UNSPECIFIED
     Dates: start: 20070301

REACTIONS (1)
  - ALVEOLITIS ALLERGIC [None]
